FAERS Safety Report 6207868-7 (Version None)
Quarter: 2009Q2

REPORT INFORMATION
  Report Type: 
  Country: None (occurrence: None)
  Receive Date: 20090527
  Receipt Date: 20090512
  Transmission Date: 20091009
  Serious: Yes (Other)
  Sender: FDA-Public Use
  Company Number: 2009S1008549

PATIENT
  Sex: Female

DRUGS (5)
  1. LEVETIRACETAM [Suspect]
     Indication: CONVULSION
     Dosage: 1500 MG;TWICE A DAY; ORAL
     Route: 048
  2. LEVETIRACETAM [Suspect]
     Indication: CONVULSION
     Dosage: 1000 MG; TWICE A DAY; ORAL
     Route: 048
  3. OXCARBAZEPINE [Suspect]
     Indication: CONVULSION
     Dosage: 150 MG; DAILY; ORAL
     Route: 048
     Dates: start: 20090428
  4. OXCARBAZEPINE [Suspect]
     Indication: CONVULSION
     Dosage: 300 MG; AT BEDTIME; ORAL
     Route: 048
     Dates: start: 20090428
  5. OXCARBAZEPINE [Suspect]
     Indication: CONVULSION
     Dosage: 600 MG; TIWCE A DAY; ORAL
     Route: 048
     Dates: start: 20090428

REACTIONS (6)
  - ANTICONVULSANT DRUG LEVEL DECREASED [None]
  - AURA [None]
  - CONVULSION [None]
  - DRUG EFFECT DECREASED [None]
  - PRODUCT SUBSTITUTION ISSUE [None]
  - TREMOR [None]
